FAERS Safety Report 5307769-2 (Version None)
Quarter: 2007Q2

REPORT INFORMATION
  Report Type: 
  Country: None (occurrence: None)
  Receive Date: 20070418
  Receipt Date: 20070411
  Transmission Date: 20071010
  Serious: Yes (Death, Hospitalization)
  Sender: FDA-Public Use
  Company Number: 163-20785-06100123

PATIENT
  Age: 20 Year
  Sex: Male

DRUGS (32)
  1. THALOMID [Suspect]
     Indication: ACUTE GRAFT VERSUS HOST DISEASE IN SKIN
     Dosage: 400-800 MG, ORAL
     Route: 048
     Dates: start: 20021206, end: 20030215
  2. DECADRON [Suspect]
     Indication: GRAFT VERSUS HOST DISEASE
     Dosage: 5 CC, TID, ORAL
     Route: 048
     Dates: start: 20021225, end: 20030215
  3. ACTIGALL [Concomitant]
  4. ARANESP [Concomitant]
  5. PROCARDIA XL [Concomitant]
  6. COLACE (DOCUSATE SODIUM) [Concomitant]
  7. SENOKOT [Concomitant]
  8. LACTULOSE [Concomitant]
  9. VERSED [Concomitant]
  10. CELLCEPT [Concomitant]
  11. BENADRYL [Concomitant]
  12. ARTIFICIAL TEARS (ARTIFICIAL TEARS) [Concomitant]
  13. A+D (A + D OINTMENT) (OINTMENT) [Concomitant]
  14. ATIVAN [Concomitant]
  15. DILAUDID [Concomitant]
  16. LASIX [Concomitant]
  17. 70/30 INSULIN (INSULIN) [Concomitant]
  18. MORPHINE [Concomitant]
  19. PREDNISONE TAB [Concomitant]
  20. PROGRAF [Concomitant]
  21. BACTRIM DS [Concomitant]
  22. OXYCONTIN [Concomitant]
  23. MMF [Concomitant]
  24. LOVENOX (HEPARIN-FRACTIION, SODIUM SALT) [Concomitant]
  25. CELEXA [Concomitant]
  26. MULTIVITAMIN [Concomitant]
  27. FOLIC ACID [Concomitant]
  28. CALCIUM (CALCIUM) [Concomitant]
  29. DRISDOL (ERGOCALCIFEROL (SOLUTION) [Concomitant]
  30. ZINC (ZINC) [Concomitant]
  31. ARGINAID [Concomitant]
  32. PROTONIX [Concomitant]

REACTIONS (19)
  - ACUTE GRAFT VERSUS HOST DISEASE IN LIVER [None]
  - BLOOD GLUCOSE INCREASED [None]
  - BLOOD MAGNESIUM INCREASED [None]
  - BLOOD PRESSURE INCREASED [None]
  - BLOOD SODIUM DECREASED [None]
  - BLOOD UREA INCREASED [None]
  - DISCOMFORT [None]
  - ENTEROCOCCAL INFECTION [None]
  - FLUID INTAKE REDUCED [None]
  - GRAFT VERSUS HOST DISEASE [None]
  - HAEMATOCRIT DECREASED [None]
  - HAEMOGLOBIN DECREASED [None]
  - HEART RATE INCREASED [None]
  - LYMPHOCYTE COUNT DECREASED [None]
  - PLATELET COUNT DECREASED [None]
  - PNEUMONIA [None]
  - PNEUMONIA ASPIRATION [None]
  - SKIN INFECTION [None]
  - WOUND [None]
